FAERS Safety Report 17692772 (Version 1)
Quarter: 2020Q2

REPORT INFORMATION
  Report Type: Spontaneous
  Country: DE (occurrence: DE)
  Receive Date: 20200422
  Receipt Date: 20200422
  Transmission Date: 20200714
  Serious: Yes (Life-Threatening, Hospitalization, Other)
  Sender: FDA-Public Use
  Company Number: DE-LUPIN PHARMACEUTICALS INC.-2020-01700

PATIENT
  Age: 58 Year
  Sex: Female

DRUGS (4)
  1. CLONIDINE. [Suspect]
     Active Substance: CLONIDINE
     Dosage: 22343 MICROGRAM, QD
     Route: 037
  2. CLONIDINE. [Suspect]
     Active Substance: CLONIDINE
     Indication: NEURALGIA
     Dosage: 22343 MICROGRAM, QD (WITHDRAWAL OF CONTINUOUS CLONIDINE)
     Route: 037
  3. MORPHINE [Suspect]
     Active Substance: MORPHINE
     Indication: NEURALGIA
     Dosage: 53624 MILLIGRAM, QD (WITHDRAWAL OF CONTINUOUS MORPHINE)
     Route: 037
  4. MORPHINE [Suspect]
     Active Substance: MORPHINE
     Dosage: 53624 MILLIGRAM, QD
     Route: 037

REACTIONS (8)
  - Heart rate increased [Unknown]
  - Body temperature increased [Unknown]
  - Depressed level of consciousness [None]
  - Myoclonus [Recovered/Resolved]
  - Oxygen saturation decreased [Unknown]
  - Hypertensive crisis [Unknown]
  - Drug withdrawal syndrome [Unknown]
  - Retrograde amnesia [Unknown]
